FAERS Safety Report 13111190 (Version 3)
Quarter: 2017Q1

REPORT INFORMATION
  Report Type: Spontaneous
  Country: JP (occurrence: JP)
  Receive Date: 20170112
  Receipt Date: 20170127
  Transmission Date: 20170428
  Serious: Yes (Hospitalization)
  Sender: FDA-Public Use
  Company Number: JP-ABBVIE-17P-087-1836421-00

PATIENT
  Age: 79 Year
  Sex: Female

DRUGS (8)
  1. NICARDIPINE HYDROCHLORIDE. [Interacting]
     Active Substance: NICARDIPINE HYDROCHLORIDE
     Indication: CEREBRAL HAEMORRHAGE
     Dosage: 7MG/HOUR (ADJUSTED AS NEEDED ACCORDING TO LEVELS OF BLOOD?PRESSURE)
     Route: 041
     Dates: start: 20161224, end: 20161227
  2. VIEKIRAX [Suspect]
     Active Substance: OMBITASVIR\PARITAPREVIR\RITONAVIR
     Indication: HEPATITIS C
     Route: 048
     Dates: start: 201609, end: 20161228
  3. NIFEDIPINE. [Suspect]
     Active Substance: NIFEDIPINE
     Route: 048
     Dates: start: 20161229, end: 20161230
  4. NIFEDIPINE. [Suspect]
     Active Substance: NIFEDIPINE
     Route: 048
     Dates: start: 20170103, end: 20170111
  5. NIFEDIPINE. [Suspect]
     Active Substance: NIFEDIPINE
     Route: 048
     Dates: start: 20161228, end: 20161228
  6. NIFEDIPINE. [Suspect]
     Active Substance: NIFEDIPINE
     Route: 048
     Dates: start: 20161227, end: 20161227
  7. IRBETAN [Concomitant]
     Active Substance: IRBESARTAN
     Indication: PRODUCT USED FOR UNKNOWN INDICATION
     Dates: end: 201612
  8. NIFEDIPINE. [Suspect]
     Active Substance: NIFEDIPINE
     Indication: CEREBRAL HAEMORRHAGE
     Route: 048
     Dates: start: 20161226, end: 20161226

REACTIONS (6)
  - Pleural effusion [Unknown]
  - Cerebral haemorrhage [Unknown]
  - Pulmonary congestion [Recovered/Resolved]
  - Blood pressure decreased [Recovering/Resolving]
  - Oxygen saturation decreased [Unknown]
  - Drug interaction [Unknown]

NARRATIVE: CASE EVENT DATE: 201612
